FAERS Safety Report 24820328 (Version 1)
Quarter: 2025Q1

REPORT INFORMATION
  Report Type: Spontaneous
  Country: US (occurrence: US)
  Receive Date: 20250108
  Receipt Date: 20250108
  Transmission Date: 20250409
  Serious: No
  Sender: MERCK
  Company Number: US-009507513-2412USA003778

PATIENT
  Age: 65 Year
  Sex: Male

DRUGS (15)
  1. WELIREG [Suspect]
     Active Substance: BELZUTIFAN
     Indication: Renal cell carcinoma
     Dosage: 120 MG (3 TABLETS), DAILY (QD)
     Route: 048
     Dates: end: 2024
  2. WELIREG [Suspect]
     Active Substance: BELZUTIFAN
     Dosage: 80 MG (2 TABLETS), DAILY (QD)
     Route: 048
     Dates: start: 2024
  3. FOTIVDA [Suspect]
     Active Substance: TIVOZANIB HYDROCHLORIDE
     Indication: Renal cell carcinoma
     Route: 048
  4. AMLODIPINE BESYLATE [Concomitant]
     Active Substance: AMLODIPINE BESYLATE
  5. ATENOLOL [Concomitant]
     Active Substance: ATENOLOL
  6. LEVOTHYROXINE SODIUM [Concomitant]
     Active Substance: LEVOTHYROXINE SODIUM
  7. MAGNESIUM [Concomitant]
     Active Substance: MAGNESIUM
  8. VITAMINS NOS [Concomitant]
     Active Substance: VITAMINS
  9. NORCO [Concomitant]
     Active Substance: ACETAMINOPHEN\HYDROCODONE BITARTRATE
  10. PROTONIX [Concomitant]
     Active Substance: PANTOPRAZOLE SODIUM
  11. ZINC [Concomitant]
     Active Substance: ZINC
  12. TRAMADOL HYDROCHLORIDE [Concomitant]
     Active Substance: TRAMADOL HYDROCHLORIDE
  13. VITAMIN B12 [Concomitant]
     Active Substance: CYANOCOBALAMIN
  14. VITAMIN B COMPLEX [DEXPANTHENOL;NICOTINAMIDE;PYRIDOXINE HYDROCHLORIDE; [Concomitant]
  15. VITAMIN C [Concomitant]
     Active Substance: ASCORBIC ACID

REACTIONS (4)
  - Night sweats [Not Recovered/Not Resolved]
  - White blood cell count decreased [Unknown]
  - Red blood cell count decreased [Unknown]
  - Haemoglobin decreased [Unknown]

NARRATIVE: CASE EVENT DATE: 20240101
